FAERS Safety Report 7956627-3 (Version None)
Quarter: 2011Q4

REPORT INFORMATION
  Report Type: 
  Country: None (occurrence: None)
  Receive Date: 20111201
  Receipt Date: 20111124
  Transmission Date: 20120403
  Serious: Yes (Hospitalization)
  Sender: FDA-Public Use
  Company Number: DSM-2011-01191

PATIENT
  Age: 67 Year
  Sex: Male

DRUGS (2)
  1. OLMESARTAN MEDOXOMIL/AMLODIPINE BESYLATE/HYDROCHLOROTHIAZIDE [Suspect]
     Indication: ESSENTIAL HYPERTENSION
     Dosage: 40/10/12.5 MG,ORAL
     Route: 048
  2. ASS (ACETYLSALICYLIC ACID) (100 MILLIGRAM) (ACETYLSALICYLIC ACID) [Concomitant]

REACTIONS (2)
  - ANGINA PECTORIS [None]
  - VENTRICULAR EXTRASYSTOLES [None]
